FAERS Safety Report 7755098-X (Version None)
Quarter: 2011Q3

REPORT INFORMATION
  Report Type: 
  Country: None (occurrence: None)
  Receive Date: 20110916
  Receipt Date: 20110912
  Transmission Date: 20111222
  Serious: No
  Sender: FDA-Public Use
  Company Number: US-PFIZER INC-2011213999

PATIENT
  Sex: Male

DRUGS (1)
  1. PRISTIQ [Suspect]
     Dosage: UNK
     Route: 048
     Dates: start: 20110101, end: 20110908

REACTIONS (9)
  - NAUSEA [None]
  - DYSGRAPHIA [None]
  - CONFUSIONAL STATE [None]
  - DIZZINESS [None]
  - GAIT DISTURBANCE [None]
  - DISORIENTATION [None]
  - ABNORMAL BEHAVIOUR [None]
  - HEADACHE [None]
  - CONSTIPATION [None]
